FAERS Safety Report 4587305-9 (Version None)
Quarter: 2005Q1

REPORT INFORMATION
  Report Type: 
  Country: None (occurrence: None)
  Receive Date: 20050215
  Receipt Date: 20050206
  Transmission Date: 20050727
  Serious: No
  Sender: FDA-Public Use
  Company Number: 05H-093-0289808-00

PATIENT
  Age: 62 Year
  Sex: Female

DRUGS (5)
  1. LIDOCAINE HYDROCHLORIDE 2% INJ [Suspect]
     Indication: LOCAL ANAESTHESIA
     Dosage: RETROBULBAR INJECTION
     Route: 056
  2. MARCAINE [Suspect]
     Indication: LOCAL ANAESTHESIA
     Dosage: RETROBULBAR INJECTION
     Route: 056
  3. HYALURONIDASE [Concomitant]
  4. TOBRAMYCIN [Concomitant]
  5. DEXAMETHASONE [Concomitant]

REACTIONS (6)
  - ANAESTHETIC COMPLICATION [None]
  - DIPLOPIA [None]
  - DRUG TOXICITY [None]
  - EYE MOVEMENT DISORDER [None]
  - STRABISMUS [None]
  - VISUAL DISTURBANCE [None]
